FAERS Safety Report 15498577 (Version 2)
Quarter: 2018Q4

REPORT INFORMATION
  Report Type: Spontaneous
  Country: PT (occurrence: PT)
  Receive Date: 20181015
  Receipt Date: 20181018
  Transmission Date: 20190205
  Serious: Yes (Hospitalization)
  Sender: FDA-Public Use
  Company Number: PHHY2018PT122748

PATIENT
  Age: 47 Year
  Sex: Female

DRUGS (3)
  1. NIMESULIDE [Concomitant]
     Active Substance: NIMESULIDE
     Indication: TONSILLITIS BACTERIAL
     Route: 065
  2. AMOXICILLIN SODIUM+POTASSIUM CLAVULANATE [Suspect]
     Active Substance: AMOXICILLIN\CLAVULANATE POTASSIUM
     Indication: TONSILLITIS BACTERIAL
     Route: 065
  3. PARACETAMOL [Concomitant]
     Active Substance: ACETAMINOPHEN
     Indication: TONSILLITIS BACTERIAL
     Route: 065

REACTIONS (2)
  - Pustular psoriasis [Recovered/Resolved]
  - Disease progression [Unknown]
